FAERS Safety Report 9995537 (Version 3)
Quarter: 2015Q3

REPORT INFORMATION
  Report Type: Spontaneous
  Country: JP (occurrence: JP)
  Receive Date: 20140311
  Receipt Date: 20150729
  Transmission Date: 20151125
  Serious: Yes (Death, Hospitalization)
  Sender: FDA-Public Use
  Company Number: JP-SA-2014SA029543

PATIENT
  Age: 73 Year
  Sex: Male

DRUGS (12)
  1. BCG FOR IMMUNOTHERAPY [Suspect]
     Active Substance: BACILLUS CALMETTE-GUERIN ANTIGEN, UNSPECIFIED SUBSTRAIN
     Indication: BLADDER CANCER
     Route: 043
  2. BCG FOR IMMUNOTHERAPY [Suspect]
     Active Substance: BACILLUS CALMETTE-GUERIN ANTIGEN, UNSPECIFIED SUBSTRAIN
     Indication: BLADDER CANCER
     Dosage: BCG 80 MG WAS DISSOLVED IN SALINE 100 ML, AND WAS THEN INJECTED INTO THE BLADDER
     Route: 043
  3. BCG FOR IMMUNOTHERAPY [Suspect]
     Active Substance: BACILLUS CALMETTE-GUERIN ANTIGEN, UNSPECIFIED SUBSTRAIN
     Indication: BLADDER CANCER
     Dosage: 80 ML COULD BE INJECTED AT THE SECOND INSTILLATION
     Route: 043
  4. BCG FOR IMMUNOTHERAPY [Suspect]
     Active Substance: BACILLUS CALMETTE-GUERIN ANTIGEN, UNSPECIFIED SUBSTRAIN
     Indication: URETERIC CANCER
     Route: 043
  5. BCG FOR IMMUNOTHERAPY [Suspect]
     Active Substance: BACILLUS CALMETTE-GUERIN ANTIGEN, UNSPECIFIED SUBSTRAIN
     Indication: URETERIC CANCER
     Route: 043
  6. BCG FOR IMMUNOTHERAPY [Suspect]
     Active Substance: BACILLUS CALMETTE-GUERIN ANTIGEN, UNSPECIFIED SUBSTRAIN
     Indication: URETERIC CANCER
     Dosage: BCG 80 MG WAS DISSOLVED IN SALINE 100 ML, AND WAS THEN INJECTED INTO THE BLADDER
     Route: 043
  7. BCG FOR IMMUNOTHERAPY [Suspect]
     Active Substance: BACILLUS CALMETTE-GUERIN ANTIGEN, UNSPECIFIED SUBSTRAIN
     Indication: BLADDER CANCER
     Route: 043
  8. BCG FOR IMMUNOTHERAPY [Suspect]
     Active Substance: BACILLUS CALMETTE-GUERIN ANTIGEN, UNSPECIFIED SUBSTRAIN
     Indication: URETERIC CANCER
     Route: 043
  9. BCG FOR IMMUNOTHERAPY [Suspect]
     Active Substance: BACILLUS CALMETTE-GUERIN ANTIGEN, UNSPECIFIED SUBSTRAIN
     Indication: URETERIC CANCER
     Dosage: 80 ML COULD BE INJECTED AT THE SECOND INSTILLATION
     Route: 043
  10. BCG FOR IMMUNOTHERAPY [Suspect]
     Active Substance: BACILLUS CALMETTE-GUERIN ANTIGEN, UNSPECIFIED SUBSTRAIN
     Indication: URETERIC CANCER
     Route: 043
  11. BCG FOR IMMUNOTHERAPY [Suspect]
     Active Substance: BACILLUS CALMETTE-GUERIN ANTIGEN, UNSPECIFIED SUBSTRAIN
     Indication: BLADDER CANCER
     Route: 043
  12. BCG FOR IMMUNOTHERAPY [Suspect]
     Active Substance: BACILLUS CALMETTE-GUERIN ANTIGEN, UNSPECIFIED SUBSTRAIN
     Indication: BLADDER CANCER
     Route: 043

REACTIONS (15)
  - Respiratory depression [Fatal]
  - Renal tuberculosis [Unknown]
  - Granuloma [Unknown]
  - Treatment failure [Unknown]
  - Vesicoureteric reflux [Unknown]
  - Pyrexia [Unknown]
  - Back pain [Unknown]
  - Haematuria [Unknown]
  - Interstitial lung disease [Fatal]
  - Renal mass [Unknown]
  - Inflammation [Unknown]
  - Incorrect route of drug administration [Unknown]
  - Urinary tract infection [Unknown]
  - Pyuria [Unknown]
  - Bladder transitional cell carcinoma recurrent [Unknown]
